FAERS Safety Report 6069401-2 (Version None)
Quarter: 2009Q1

REPORT INFORMATION
  Report Type: 
  Country: None (occurrence: None)
  Receive Date: 20090206
  Receipt Date: 20081203
  Transmission Date: 20090719
  Serious: Yes (Other)
  Sender: FDA-Public Use
  Company Number: GB-PFIZER INC-2009154633

PATIENT

DRUGS (6)
  1. CHAMPIX [Suspect]
     Indication: SMOKING CESSATION THERAPY
     Dosage: 1 DF, 2X/DAY
     Route: 048
     Dates: start: 20080226, end: 20080624
  2. BENDROFLUAZIDE [Concomitant]
     Dosage: 1 DF, 1X/DAY
     Dates: start: 20031114
  3. CITALOPRAM HYDROBROMIDE [Concomitant]
     Dosage: 1 DF, 1X/DAY
  4. IRBESARTAN [Concomitant]
     Dosage: 1 DF, 1X/DAY
     Dates: start: 20060502
  5. SIMVASTATIN [Concomitant]
     Dates: start: 20080304
  6. THIAMINE HYDROCHLORIDE [Concomitant]
     Dosage: 1 DF, 1X/DAY
     Dates: start: 20041125

REACTIONS (2)
  - DEPRESSION [None]
  - OVERDOSE [None]
